FAERS Safety Report 5486524-7 (Version None)
Quarter: 2007Q3

REPORT INFORMATION
  Report Type: 
  Country: None (occurrence: None)
  Receive Date: 20070919
  Receipt Date: 20070522
  Transmission Date: 20080115
  Serious: No
  Sender: FDA-Public Use
  Company Number: 2007RL000248

PATIENT
  Age: 73 Year
  Sex: Female

DRUGS (5)
  1. OMACOR [Suspect]
     Indication: DRUG USE FOR UNKNOWN INDICATION
     Dosage: 4 GM;QD;PO
     Route: 048
     Dates: start: 20060401
  2. TRICOR /00499301/ [Concomitant]
  3. PLAVIX [Concomitant]
  4. FEMARA [Concomitant]
  5. DIOVAN [Concomitant]

REACTIONS (1)
  - BLOOD GLUCOSE INCREASED [None]
